FAERS Safety Report 17575161 (Version 1)
Quarter: 2020Q1

REPORT INFORMATION
  Report Type: Spontaneous
  Country: US (occurrence: US)
  Receive Date: 20200324
  Receipt Date: 20200324
  Transmission Date: 20200409
  Serious: Yes (Disabling)
  Sender: FDA-Public Use
  Company Number: NVSC2020US080836

PATIENT
  Age: 47 Year
  Sex: Female
  Weight: 49.89 kg

DRUGS (2)
  1. XIIDRA [Suspect]
     Active Substance: LIFITEGRAST
     Indication: DRY EYE
     Dosage: UNK UNK, BID
     Route: 047
  2. XIIDRA [Suspect]
     Active Substance: LIFITEGRAST
     Dosage: 5 %, BID
     Route: 047
     Dates: start: 2018, end: 20200122

REACTIONS (8)
  - Lacrimation increased [Recovered/Resolved]
  - Erythema of eyelid [Unknown]
  - Eye pain [Unknown]
  - Pharyngeal swelling [Unknown]
  - Eye swelling [Unknown]
  - Upper-airway cough syndrome [Recovered/Resolved]
  - Conjunctivitis [Recovered/Resolved]
  - Swelling of eyelid [Recovered/Resolved]

NARRATIVE: CASE EVENT DATE: 20190615
